FAERS Safety Report 12847688 (Version 1)
Quarter: 2016Q4

REPORT INFORMATION
  Report Type: Spontaneous
  Country: US (occurrence: US)
  Receive Date: 20161013
  Receipt Date: 20161013
  Transmission Date: 20170207
  Serious: Yes (Other)
  Sender: FDA-Public Use
  Company Number: None

PATIENT
  Age: 60 Year
  Sex: Male
  Weight: 76.5 kg

DRUGS (1)
  1. AMLODIPINE/BENAZEPRIL AUROBINDO [Suspect]
     Active Substance: AMLODIPINE BESYLATE\BENAZEPRIL HYDROCHLORIDE
     Indication: HYPERTENSION
     Route: 048
     Dates: start: 20161003, end: 20161013

REACTIONS (4)
  - Pruritus [None]
  - Product substitution issue [None]
  - Nausea [None]
  - Piloerection [None]

NARRATIVE: CASE EVENT DATE: 20161003
